FAERS Safety Report 8529952-5 (Version None)
Quarter: 2012Q3

REPORT INFORMATION
  Report Type: 
  Country: None (occurrence: None)
  Receive Date: 20120723
  Receipt Date: 20120711
  Transmission Date: 20120928
  Serious: Yes (Other)
  Sender: FDA-Public Use
  Company Number: PHHY2012FR058553

PATIENT
  Sex: Male

DRUGS (1)
  1. CLOZAPINE [Suspect]
     Dosage: 25 MG, QD
     Dates: start: 20050512, end: 20050714

REACTIONS (18)
  - PALPITATIONS [None]
  - EJECTION FRACTION DECREASED [None]
  - CARDIAC DISORDER [None]
  - DYSPNOEA EXERTIONAL [None]
  - SKIN REACTION [None]
  - CONFUSIONAL STATE [None]
  - LEFT VENTRICULAR DYSFUNCTION [None]
  - CARDIOMEGALY [None]
  - HYPERHIDROSIS [None]
  - FATIGUE [None]
  - CHEST PAIN [None]
  - TACHYARRHYTHMIA [None]
  - CONGESTIVE CARDIOMYOPATHY [None]
  - VOMITING [None]
  - NAUSEA [None]
  - BLOOD PRESSURE INCREASED [None]
  - FEELING ABNORMAL [None]
  - WEIGHT INCREASED [None]
